FAERS Safety Report 19116706 (Version 3)
Quarter: 2021Q2

REPORT INFORMATION
  Report Type: Spontaneous
  Country: BR (occurrence: BR)
  Receive Date: 20210410
  Receipt Date: 20210527
  Transmission Date: 20210717
  Serious: Yes (Death)
  Sender: FDA-Public Use
  Company Number: BR-ROCHE-2804187

PATIENT
  Age: 73 Year
  Sex: Female
  Weight: 74 kg

DRUGS (6)
  1. METHYLPREDNISOLONE. [Concomitant]
     Active Substance: METHYLPREDNISOLONE
  2. NORADRENALINE [Concomitant]
     Active Substance: NOREPINEPHRINE
  3. ACTEMRA [Suspect]
     Active Substance: TOCILIZUMAB
     Indication: COVID-19
     Route: 042
     Dates: start: 20210313, end: 20210313
  4. FENTANYL. [Concomitant]
     Active Substance: FENTANYL
  5. ENOXAPARIN [Concomitant]
     Active Substance: ENOXAPARIN
  6. MIDAZOLAM. [Concomitant]
     Active Substance: MIDAZOLAM

REACTIONS (2)
  - Off label use [Unknown]
  - COVID-19 [Fatal]

NARRATIVE: CASE EVENT DATE: 20210313
